FAERS Safety Report 6304983-4 (Version None)
Quarter: 2009Q3

REPORT INFORMATION
  Report Type: 
  Country: None (occurrence: None)
  Receive Date: 20090811
  Receipt Date: 20090804
  Transmission Date: 20100115
  Serious: Yes (Other)
  Sender: FDA-Public Use
  Company Number: JP-MERCK-0907USA03285

PATIENT
  Age: 70 Year
  Sex: Female
  Weight: 60 kg

DRUGS (1)
  1. FOSAMAX [Suspect]
     Indication: FEMUR FRACTURE
     Route: 048

REACTIONS (3)
  - BONE DISORDER [None]
  - FEMUR FRACTURE [None]
  - ILIUM FRACTURE [None]
